FAERS Safety Report 20481759 (Version 1)
Quarter: 2022Q1

REPORT INFORMATION
  Report Type: Spontaneous
  Country: AU (occurrence: AU)
  Receive Date: 20220216
  Receipt Date: 20220216
  Transmission Date: 20220423
  Serious: Yes (Other)
  Sender: FDA-Public Use
  Company Number: AU-TEVA-2022-AU-2008134

PATIENT
  Sex: Male

DRUGS (6)
  1. TESTOSTERONE [Suspect]
     Active Substance: TESTOSTERONE
     Route: 065
  2. PRASTERONE [Suspect]
     Active Substance: PRASTERONE
     Route: 065
  3. PROGESTERONE [Suspect]
     Active Substance: PROGESTERONE
     Route: 065
  4. MELATONIN [Concomitant]
     Active Substance: MELATONIN
  5. TELMISARTAN [Concomitant]
     Active Substance: TELMISARTAN
  6. VITAMINS [Concomitant]
     Active Substance: VITAMINS

REACTIONS (8)
  - Blood testosterone free increased [Unknown]
  - Hypercoagulation [Unknown]
  - Intracranial aneurysm [Unknown]
  - Oestradiol increased [Unknown]
  - Progesterone increased [Unknown]
  - Thrombosis [Unknown]
  - Off label use [Unknown]
  - Product use in unapproved indication [Unknown]
